FAERS Safety Report 5265946-3 (Version None)
Quarter: 2007Q1

REPORT INFORMATION
  Report Type: 
  Country: None (occurrence: None)
  Receive Date: 20070313
  Receipt Date: 20070313
  Transmission Date: 20070707
  Serious: No
  Sender: FDA-Public Use
  Company Number: None

PATIENT
  Age: 2 Year
  Sex: Male
  Weight: 14.5151 kg

DRUGS (2)
  1. VERSED [Suspect]
     Indication: COLONOSCOPY
     Dates: start: 20070307, end: 20070307
  2. VERSED [Suspect]
     Indication: SEDATIVE THERAPY
     Dates: start: 20070307, end: 20070307

REACTIONS (4)
  - CRYING [None]
  - INCORRECT DOSE ADMINISTERED [None]
  - MEDICATION ERROR [None]
  - SCREAMING [None]
